FAERS Safety Report 4548643-9 (Version None)
Quarter: 2005Q1

REPORT INFORMATION
  Report Type: 
  Country: None (occurrence: None)
  Receive Date: 20050107
  Receipt Date: 20050107
  Transmission Date: 20050727
  Serious: Yes (Other)
  Sender: FDA-Public Use
  Company Number: None

PATIENT
  Age: 61 Year
  Sex: Male
  Weight: 75.7507 kg

DRUGS (4)
  1. TAXOL [Suspect]
     Indication: TONGUE NEOPLASM MALIGNANT STAGE UNSPECIFIED
     Dosage: WEEKLY
  2. CARBOPLATIN [Suspect]
     Dosage: WEEKLY
  3. RADIATION [Concomitant]
  4. AMIFOSTINE [Concomitant]

REACTIONS (5)
  - ASTHENIA [None]
  - COUGH [None]
  - HEART RATE INCREASED [None]
  - HYPOTENSION [None]
  - PYREXIA [None]
